FAERS Safety Report 5354221-4 (Version None)
Quarter: 2007Q2

REPORT INFORMATION
  Report Type: 
  Country: None (occurrence: None)
  Receive Date: 20070612
  Receipt Date: 20070530
  Transmission Date: 20071010
  Serious: Yes (Hospitalization)
  Sender: FDA-Public Use
  Company Number: US-ELI_LILLY_AND_COMPANY-US200705007565

PATIENT
  Sex: Female

DRUGS (2)
  1. HUMATROPE [Suspect]
     Indication: HYPOPITUITARISM
     Dates: start: 20020101, end: 20040101
  2. HUMATROPE [Suspect]
     Dosage: 0.2 MG, DAILY (1/D)
     Dates: start: 20070316

REACTIONS (2)
  - DRUG INEFFECTIVE [None]
  - POSTMENOPAUSAL HAEMORRHAGE [None]
